FAERS Safety Report 5226024-2 (Version None)
Quarter: 2007Q1

REPORT INFORMATION
  Report Type: 
  Country: None (occurrence: None)
  Receive Date: 20070129
  Receipt Date: 20070116
  Transmission Date: 20070707
  Serious: Yes (Life-Threatening, Hospitalization, Other)
  Sender: FDA-Public Use
  Company Number: 234710

PATIENT
  Age: 25 Year
  Sex: Female

DRUGS (7)
  1. RITUXAN [Suspect]
     Indication: SYSTEMIC LUPUS ERYTHEMATOSUS
     Dosage: 750 MG,
     Dates: start: 20060814
  2. PREDNISONE TAB [Concomitant]
  3. CYCLOPHOSPHAMIDE [Concomitant]
  4. METHYLPREDNISOLONE [Concomitant]
  5. PRILOSEC [Concomitant]
  6. DEPO-PROVERA SUSPENSION/INJ [Concomitant]
  7. TMP-SMX DS (SULFAMETHOXAZOLE, TRIMETHOPRIM) [Concomitant]

REACTIONS (6)
  - ASPERGILLOSIS [None]
  - CEREBRAL ASPERGILLOSIS [None]
  - RENAL DISORDER [None]
  - URETERIC OBSTRUCTION [None]
  - URINARY TRACT INFECTION FUNGAL [None]
  - VITH NERVE PARALYSIS [None]
